FAERS Safety Report 11023366 (Version 3)
Quarter: 2015Q2

REPORT INFORMATION
  Report Type: Report from Study
  Country: US (occurrence: US)
  Receive Date: 20150413
  Receipt Date: 20150429
  Transmission Date: 20150821
  Serious: Yes (Other)
  Sender: FDA-Public Use
  Company Number: PHEH2015US005230

PATIENT
  Sex: Female
  Weight: 67.12 kg

DRUGS (3)
  1. ZYKADIA [Suspect]
     Active Substance: CERITINIB
     Dosage: 3 DF, (450 MG) QD
     Route: 048
  2. ZYKADIA [Suspect]
     Active Substance: CERITINIB
     Dosage: 600 MG, QD
     Route: 048
  3. ZYKADIA [Suspect]
     Active Substance: CERITINIB
     Indication: NON-SMALL CELL LUNG CANCER
     Dosage: 750 MG, QD
     Route: 048
     Dates: start: 20150303

REACTIONS (5)
  - Nausea [Recovering/Resolving]
  - Injection site haemorrhage [Recovered/Resolved]
  - Diarrhoea [Recovering/Resolving]
  - Mood altered [Recovering/Resolving]
  - Dysgeusia [Recovering/Resolving]
